FAERS Safety Report 26154963 (Version 1)
Quarter: 2025Q4

REPORT INFORMATION
  Report Type: Spontaneous
  Country: EU (occurrence: EU)
  Receive Date: 20251215
  Receipt Date: 20251215
  Transmission Date: 20260118
  Serious: Yes (Hospitalization, Other)
  Sender: CHEPLAPHARM
  Company Number: None

PATIENT
  Age: 64 Year
  Sex: Female
  Weight: 63.4 kg

DRUGS (11)
  1. CAPECITABINE [Suspect]
     Active Substance: CAPECITABINE
     Indication: Breast cancer recurrent
     Dosage: 1500 MG MORNING AND EVENING FOR 14 DAYS, EVERY MONTH?DAILY DOSE: 3000 MILLIGRAM
     Route: 048
     Dates: start: 20250901, end: 20251103
  2. CAPECITABINE [Suspect]
     Active Substance: CAPECITABINE
     Indication: Breast cancer recurrent
     Dosage: 2XDAY?DAILY DOSE: 3000 MILLIGRAM
     Dates: start: 20251022, end: 20251028
  3. CAPECITABINE [Suspect]
     Active Substance: CAPECITABINE
     Indication: Breast cancer recurrent
     Dosage: DOSE REDUCED
  4. INNOHEP [Suspect]
     Active Substance: TINZAPARIN SODIUM
     Dosage: DAILY DOSE: 1000 IU (INTERNATIONAL UNIT)
  5. INNOHEP [Suspect]
     Active Substance: TINZAPARIN SODIUM
     Dosage: DAILY DOSE: 1400 IU (INTERNATIONAL UNIT)
  6. PREDNISONE [Concomitant]
     Active Substance: PREDNISONE
     Dosage: DAILY DOSE: 20 MILLIGRAM
  7. ACETAMINOPHEN [Concomitant]
     Active Substance: ACETAMINOPHEN
     Dosage: 1 GX3 DAY
  8. ESCITALOPRAM [Concomitant]
     Active Substance: ESCITALOPRAM OXALATE
     Dosage: DAILY DOSE: 10 MILLIGRAM
  9. SPASFON [Concomitant]
  10. SYMBICORT [Concomitant]
     Active Substance: BUDESONIDE\FORMOTEROL FUMARATE DIHYDRATE
  11. PIPERACILLIN SODIUM\TAZOBACTAM SODIUM [Concomitant]
     Active Substance: PIPERACILLIN SODIUM\TAZOBACTAM SODIUM
     Dosage: 3X/D?DAILY DOSE: 12 GRAM
     Dates: start: 20251020, end: 20251028

REACTIONS (14)
  - Hyperammonaemic encephalopathy [Not Recovered/Not Resolved]
  - Gastric haemorrhage [Unknown]
  - Ascites [Unknown]
  - Thrombosis [Unknown]
  - Pneumonia [Unknown]
  - Multisystem inflammatory syndrome [Unknown]
  - Haematuria [Unknown]
  - Anaemia [Unknown]
  - Tachycardia [Unknown]
  - Pleural effusion [Unknown]
  - Thrombocytopenia [Unknown]
  - Lymphopenia [Unknown]
  - Cholestasis [Unknown]
  - Condition aggravated [Unknown]

NARRATIVE: CASE EVENT DATE: 20251001
